FAERS Safety Report 5801693-4 (Version None)
Quarter: 2008Q3

REPORT INFORMATION
  Report Type: 
  Country: None (occurrence: None)
  Receive Date: 20080707
  Receipt Date: 20080624
  Transmission Date: 20090109
  Serious: Yes (Other)
  Sender: FDA-Public Use
  Company Number: B0526815A

PATIENT
  Age: 48 Year
  Sex: Female

DRUGS (6)
  1. AUGMENTIN '125' [Suspect]
     Indication: BREAST ABSCESS
     Dosage: 1G TWICE PER DAY
     Route: 048
     Dates: start: 20080611, end: 20080611
  2. PYOSTACINE 500 [Suspect]
     Indication: BREAST ABSCESS
     Dosage: 3TAB TWICE PER DAY
     Route: 048
     Dates: start: 20080610, end: 20080610
  3. DAFALGAN [Suspect]
     Indication: BREAST ABSCESS
     Dosage: 1TAB TWICE PER DAY
     Route: 048
     Dates: start: 20080610, end: 20080610
  4. EXTRANASE [Suspect]
     Indication: BREAST ABSCESS
     Dosage: 3TAB TWICE PER DAY
     Route: 048
     Dates: start: 20080610, end: 20080610
  5. KESTIN [Concomitant]
     Indication: DRUG USE FOR UNKNOWN INDICATION
     Route: 048
  6. THERALITE [Concomitant]
     Indication: DEPRESSION
     Route: 065

REACTIONS (6)
  - ACUTE GENERALISED EXANTHEMATOUS PUSTULOSIS [None]
  - ERYTHEMA [None]
  - LYMPHADENOPATHY [None]
  - RASH SCARLATINIFORM [None]
  - SKIN DISORDER [None]
  - TOXIC SKIN ERUPTION [None]
